FAERS Safety Report 6667706-5 (Version None)
Quarter: 2010Q2

REPORT INFORMATION
  Report Type: 
  Country: None (occurrence: None)
  Receive Date: 20100405
  Receipt Date: 20100326
  Transmission Date: 20101027
  Serious: Yes (Other)
  Sender: FDA-Public Use
  Company Number: GB-TEVA-229390ISR

PATIENT
  Age: 38 Year
  Sex: Male

DRUGS (2)
  1. AZITHROMYCIN [Suspect]
     Indication: BRONCHIECTASIS
  2. IMMUNE GLOBULIN (HUMAN) [Suspect]
     Indication: PRIMARY IMMUNODEFICIENCY SYNDROME
     Route: 042
     Dates: start: 20090701, end: 20090701

REACTIONS (3)
  - ALOPECIA [None]
  - SKIN EXFOLIATION [None]
  - SKIN SWELLING [None]
